FAERS Safety Report 10981748 (Version 2)
Quarter: 2015Q2

REPORT INFORMATION
  Report Type: Spontaneous
  Country: US (occurrence: US)
  Receive Date: 20150402
  Receipt Date: 20150525
  Transmission Date: 20150821
  Serious: No
  Sender: FDA-Public Use
  Company Number: US-JNJFOC-20130909519

PATIENT
  Age: 69 Year
  Sex: Female
  Weight: 68.95 kg

DRUGS (2)
  1. IMODIUM A-D [Suspect]
     Active Substance: LOPERAMIDE HYDROCHLORIDE
     Indication: GASTROINTESTINAL PAIN
     Dosage: 1/2 TO 3/4 CHEW
     Route: 048
  2. IMODIUM A-D [Suspect]
     Active Substance: LOPERAMIDE HYDROCHLORIDE
     Indication: IRRITABLE BOWEL SYNDROME
     Dosage: 1/2 TO 3/4 CHEW
     Route: 048

REACTIONS (2)
  - Expired product administered [Unknown]
  - Wrong technique in drug usage process [Unknown]
